FAERS Safety Report 6861905-5 (Version None)
Quarter: 2010Q3

REPORT INFORMATION
  Report Type: 
  Country: None (occurrence: None)
  Receive Date: 20100721
  Receipt Date: 20100707
  Transmission Date: 20110219
  Serious: Yes (Hospitalization)
  Sender: FDA-Public Use
  Company Number: US-SHIRE-SPV1-2010-01235

PATIENT

DRUGS (2)
  1. ADDERALL XR 10 [Suspect]
     Indication: ATTENTION DEFICIT/HYPERACTIVITY DISORDER
     Dosage: 30 MG, 1X/DAY:QD
     Route: 048
  2. NASALCROM [Concomitant]
     Indication: ASTHMA
     Dosage: 5.2 MG SOLUTION, AS REQ'D

REACTIONS (4)
  - ANXIETY [None]
  - GOUT [None]
  - LEUKAEMIA [None]
  - WEIGHT DECREASED [None]
